FAERS Safety Report 14536676 (Version 1)
Quarter: 2018Q1

REPORT INFORMATION
  Report Type: Spontaneous
  Country: US (occurrence: US)
  Receive Date: 20180215
  Receipt Date: 20180215
  Transmission Date: 20180509
  Serious: Yes (Hospitalization)
  Sender: FDA-Public Use
  Company Number: None

PATIENT
  Age: 72 Year
  Sex: Male
  Weight: 91.1 kg

DRUGS (32)
  1. LOPRESSOR [Concomitant]
     Active Substance: METOPROLOL TARTRATE
  2. TIAZAC [Concomitant]
     Active Substance: DILTIAZEM HYDROCHLORIDE
  3. VITAMIN D [Concomitant]
     Active Substance: CHOLECALCIFEROL
  4. ULORIC [Concomitant]
     Active Substance: FEBUXOSTAT
  5. PERFOROMIST [Concomitant]
     Active Substance: FORMOTEROL FUMARATE DIHYDRATE
  6. PRILOSEC [Concomitant]
     Active Substance: OMEPRAZOLE MAGNESIUM
  7. ICAPS [Concomitant]
     Active Substance: MINERALS\VITAMINS
  8. PROVENTIL [Concomitant]
     Active Substance: ALBUTEROL
  9. DUONEB [Concomitant]
     Active Substance: ALBUTEROL SULFATE\IPRATROPIUM BROMIDE
  10. BROVANA [Concomitant]
     Active Substance: ARFORMOTEROL TARTRATE
  11. ROCALTROL [Concomitant]
     Active Substance: CALCITRIOL
  12. LEVEMIR [Concomitant]
     Active Substance: INSULIN DETEMIR
  13. PRAVACHOL [Concomitant]
     Active Substance: PRAVASTATIN SODIUM
  14. DEMADEX [Concomitant]
     Active Substance: TORSEMIDE
  15. TEMOVATE [Concomitant]
     Active Substance: CLOBETASOL PROPIONATE
  16. LANTUS [Concomitant]
     Active Substance: INSULIN GLARGINE
  17. NTG [Concomitant]
     Active Substance: NITROGLYCERIN
  18. KENALOG [Concomitant]
     Active Substance: TRIAMCINOLONE ACETONIDE
  19. FOLVITE [Concomitant]
     Active Substance: FOLIC ACID
  20. K-DUR [Concomitant]
     Active Substance: POTASSIUM CHLORIDE
  21. PULMICORT TURBUHALER [Concomitant]
     Active Substance: BUDESONIDE
  22. MELATONIN [Concomitant]
     Active Substance: MELATONIN
  23. METHOTREXATE. [Concomitant]
     Active Substance: METHOTREXATE
  24. SPIRIVA [Concomitant]
     Active Substance: TIOTROPIUM BROMIDE MONOHYDRATE
  25. PROTONIX [Concomitant]
     Active Substance: PANTOPRAZOLE SODIUM
  26. APIXABAN [Suspect]
     Active Substance: APIXABAN
     Indication: ATRIAL FIBRILLATION
     Dosage: DATES OF USE - CHRONIC
     Route: 048
  27. ASPIRIN. [Suspect]
     Active Substance: ASPIRIN
     Indication: CORONARY ARTERY DISEASE
     Dosage: DATES OF USE - CHRONIC
     Route: 048
  28. NOVOLOG [Concomitant]
     Active Substance: INSULIN ASPART
  29. ROBAXIN [Concomitant]
     Active Substance: METHOCARBAMOL
  30. ALBUTEROL. [Concomitant]
     Active Substance: ALBUTEROL
  31. CYMBALTA [Concomitant]
     Active Substance: DULOXETINE HYDROCHLORIDE
  32. ULTRACEL [Concomitant]

REACTIONS (4)
  - Gastrointestinal haemorrhage [None]
  - Melaena [None]
  - Therapy cessation [None]
  - Haematemesis [None]

NARRATIVE: CASE EVENT DATE: 20170521
